FAERS Safety Report 4798354-X (Version None)
Quarter: 2005Q4

REPORT INFORMATION
  Report Type: 
  Country: None (occurrence: None)
  Receive Date: 20051011
  Receipt Date: 20050930
  Transmission Date: 20060501
  Serious: Yes (Hospitalization, Other)
  Sender: FDA-Public Use
  Company Number: 2005-09-1838

PATIENT
  Age: 83 Year
  Sex: Female

DRUGS (4)
  1. IMDUR [Suspect]
     Dosage: ORAL
     Route: 048
  2. ENALAPRIL          TABELTS [Suspect]
     Indication: MYOCARDIAL INFARCTION
     Dosage: SEE IMAGE
     Route: 048
  3. ASPIRIN [Concomitant]
  4. FUROSEMIDE [Concomitant]

REACTIONS (4)
  - DIZZINESS [None]
  - DRUG INTERACTION POTENTIATION [None]
  - LOSS OF CONSCIOUSNESS [None]
  - ORTHOSTATIC HYPOTENSION [None]
